FAERS Safety Report 7241857-9 (Version None)
Quarter: 2011Q1

REPORT INFORMATION
  Report Type: 
  Country: None (occurrence: None)
  Receive Date: 20110124
  Receipt Date: 20110117
  Transmission Date: 20110831
  Serious: Yes (Hospitalization)
  Sender: FDA-Public Use
  Company Number: CH-BRISTOL-MYERS SQUIBB COMPANY-15492143

PATIENT
  Sex: Male
  Weight: 1 kg

DRUGS (6)
  1. DOXORUBICIN HCL [Suspect]
     Route: 064
     Dates: start: 20060215, end: 20060421
  2. NEUPOGEN [Suspect]
     Route: 064
     Dates: start: 20060222, end: 20060505
  3. SOLU-MEDROL [Suspect]
     Route: 064
     Dates: start: 20060215, end: 20060425
  4. IFOSFAMIDE [Suspect]
     Route: 064
     Dates: start: 20060215, end: 20060425
  5. ONDANSETRON HCL [Suspect]
     Route: 064
     Dates: start: 20060215, end: 20060426
  6. MESNA [Suspect]
     Route: 064
     Dates: start: 20060215, end: 20060426

REACTIONS (2)
  - PREMATURE BABY [None]
  - FOETAL GROWTH RESTRICTION [None]
